FAERS Safety Report 8308357-6 (Version None)
Quarter: 2012Q2

REPORT INFORMATION
  Report Type: 
  Country: None (occurrence: None)
  Receive Date: 20120424
  Receipt Date: 20120417
  Transmission Date: 20120825
  Serious: Yes (Hospitalization)
  Sender: FDA-Public Use
  Company Number: US-ROCHE-1060874

PATIENT
  Sex: Female
  Weight: 57.204 kg

DRUGS (4)
  1. ALBUTEROL [Concomitant]
  2. XOLAIR [Suspect]
     Indication: ASTHMA
     Route: 058
     Dates: start: 20120315, end: 20120411
  3. SYMBICORT [Concomitant]
  4. SINGULAIR [Concomitant]

REACTIONS (1)
  - ANAPHYLACTIC REACTION [None]
